FAERS Safety Report 16787900 (Version 3)
Quarter: 2020Q1

REPORT INFORMATION
  Report Type: Report from Study
  Country: US (occurrence: US)
  Receive Date: 20190909
  Receipt Date: 20200113
  Transmission Date: 20200409
  Serious: Yes (Death, Hospitalization)
  Sender: FDA-Public Use
  Company Number: US-BAUSCH-BL-2019-025783

PATIENT
  Age: 75 Year
  Sex: Female
  Weight: 77.18 kg

DRUGS (1)
  1. XIFAXAN [Suspect]
     Active Substance: RIFAXIMIN
     Indication: HEPATIC ENCEPHALOPATHY
     Route: 048
     Dates: start: 20180701, end: 201908

REACTIONS (4)
  - Death [Fatal]
  - Internal haemorrhage [Unknown]
  - Hospice care [Unknown]
  - Product use complaint [Unknown]

NARRATIVE: CASE EVENT DATE: 2019
